FAERS Safety Report 5309109-1 (Version None)
Quarter: 2007Q2

REPORT INFORMATION
  Report Type: 
  Country: None (occurrence: None)
  Receive Date: 20070418
  Receipt Date: 20070410
  Transmission Date: 20071010
  Serious: Yes (Disabling, Other)
  Sender: FDA-Public Use
  Company Number: 200711822

PATIENT
  Sex: Male

DRUGS (1)
  1. IMMUNE GLOBULIN SUBCUTANEOUS (HUMAN) (ZLB BEHRING) [Suspect]
     Indication: HYPOGAMMAGLOBULINAEMIA
     Dosage: SC
     Route: 058
     Dates: start: 20060701, end: 20061001

REACTIONS (1)
  - CHRONIC HEPATITIS [None]
